FAERS Safety Report 8056432-6 (Version None)
Quarter: 2012Q1

REPORT INFORMATION
  Report Type: 
  Country: None (occurrence: None)
  Receive Date: 20120119
  Receipt Date: 20120111
  Transmission Date: 20120608
  Serious: Yes (Disabling)
  Sender: FDA-Public Use
  Company Number: US-MERCK-1103USA03608

PATIENT
  Age: 23 Year
  Sex: Male

DRUGS (2)
  1. PROPECIA [Suspect]
     Route: 048
     Dates: start: 20080606, end: 20101101
  2. PROPECIA [Suspect]
     Indication: ALOPECIA
     Route: 048
     Dates: start: 20080606, end: 20101101

REACTIONS (3)
  - ANXIETY [None]
  - ERECTILE DYSFUNCTION [None]
  - MALE SEXUAL DYSFUNCTION [None]
